FAERS Safety Report 6474419-1 (Version None)
Quarter: 2009Q4

REPORT INFORMATION
  Report Type: 
  Country: None (occurrence: None)
  Receive Date: 20091204
  Receipt Date: 20091130
  Transmission Date: 20100525
  Serious: Yes (Hospitalization)
  Sender: FDA-Public Use
  Company Number: US-ELI_LILLY_AND_COMPANY-US200912000111

PATIENT
  Sex: Female
  Weight: 164.63 kg

DRUGS (7)
  1. BYETTA [Suspect]
     Indication: TYPE 2 DIABETES MELLITUS
     Dosage: 10 UG, 2/D
     Route: 058
     Dates: start: 20060101, end: 20091111
  2. BYETTA [Suspect]
     Dosage: 10 UG, 2/D
     Route: 058
     Dates: start: 20091101
  3. GLIPIZIDE [Concomitant]
     Dosage: 2.5 MG, DAILY (1/D)
     Route: 048
     Dates: end: 20091101
  4. GLIPIZIDE [Concomitant]
     Dosage: 5 MG, DAILY (1/D)
     Route: 048
     Dates: start: 20091101
  5. OXYCODONE HCL [Concomitant]
     Indication: IMPLANT SITE PAIN
  6. CYMBALTA [Concomitant]
     Indication: DEPRESSION
     Dosage: 90 MG, DAILY (1/D)
  7. INSULIN [Concomitant]
     Route: 058
     Dates: start: 20091101, end: 20091101

REACTIONS (6)
  - FALL [None]
  - HAND FRACTURE [None]
  - MEMORY IMPAIRMENT [None]
  - PAIN IN EXTREMITY [None]
  - UPPER LIMB FRACTURE [None]
  - WEIGHT DECREASED [None]
